FAERS Safety Report 5217503-2 (Version None)
Quarter: 2006Q4

REPORT INFORMATION
  Report Type: 
  Country: None (occurrence: None)
  Receive Date: 20061130
  Receipt Date: 20060530
  Transmission Date: 20070319
  Serious: Yes (Hospitalization)
  Sender: FDA-Public Use
  Company Number: US200603000465

PATIENT
  Sex: Male
  Weight: 76.6 kg

DRUGS (8)
  1. ZYPREXA [Suspect]
     Indication: BIPOLAR DISORDER
     Dates: start: 19980101
  2. PROZAC [Concomitant]
  3. ABILIFY [Concomitant]
  4. SEROQUEL [Concomitant]
  5. GEODON [Concomitant]
  6. REMERON [Concomitant]
  7. EFFEXOR [Concomitant]
  8. RISPERIDONE [Concomitant]

REACTIONS (12)
  - ANGIOPATHY [None]
  - ANXIETY [None]
  - BLOOD CHOLESTEROL [None]
  - BLOOD CHOLESTEROL ABNORMAL [None]
  - BLOOD GLUCOSE INCREASED [None]
  - BLOOD TRIGLYCERIDES INCREASED [None]
  - DIABETES MELLITUS INSULIN-DEPENDENT [None]
  - EMOTIONAL DISORDER [None]
  - HYPERTENSION [None]
  - MYOCARDIAL ISCHAEMIA [None]
  - WEIGHT DECREASED [None]
  - WEIGHT INCREASED [None]
